FAERS Safety Report 23985047 (Version 1)
Quarter: 2024Q2

REPORT INFORMATION
  Report Type: Spontaneous
  Country: US (occurrence: US)
  Receive Date: 20240618
  Receipt Date: 20240618
  Transmission Date: 20240716
  Serious: No
  Sender: FDA-Public Use
  Company Number: US-IMP-2024000335

PATIENT
  Sex: Female

DRUGS (1)
  1. NATAMYCIN [Suspect]
     Active Substance: NATAMYCIN
     Indication: Eye infection fungal
     Dosage: 1 DROP EVERY HOUR 5% IN LEFT EYE
     Route: 047
     Dates: start: 20240524

REACTIONS (2)
  - Foreign body sensation in eyes [Unknown]
  - Eye pain [Unknown]

NARRATIVE: CASE EVENT DATE: 20240501
